FAERS Safety Report 9510351 (Version 1)
Quarter: 2013Q3

REPORT INFORMATION
  Report Type: Spontaneous
  Country: US (occurrence: US)
  Receive Date: 20130909
  Receipt Date: 20130909
  Transmission Date: 20140515
  Serious: No
  Sender: FDA-Public Use
  Company Number: US-BRISTOL-MYERS SQUIBB COMPANY-17439811

PATIENT
  Age: 37 Year
  Sex: Female
  Weight: 58.96 kg

DRUGS (4)
  1. ABILIFY TABS 10 MG [Suspect]
     Indication: BIPOLAR DISORDER
     Dates: start: 2010
  2. SEROQUEL [Concomitant]
  3. LITHIUM [Concomitant]
  4. KLONOPIN [Concomitant]

REACTIONS (1)
  - Insomnia [Unknown]
